FAERS Safety Report 9342847 (Version 1)
Quarter: 2013Q2

REPORT INFORMATION
  Report Type: Spontaneous
  Country: US (occurrence: US)
  Receive Date: 20130611
  Receipt Date: 20130611
  Transmission Date: 20140414
  Serious: Yes (Disabling)
  Sender: FDA-Public Use
  Company Number: US-GLAXOSMITHKLINE-A1025847A

PATIENT
  Age: 68 Year
  Sex: Male

DRUGS (2)
  1. PROMACTA [Suspect]
     Indication: PRODUCT USED FOR UNKNOWN INDICATION
     Dosage: 50MG PER DAY
     Route: 048
     Dates: start: 201201
  2. NO CONCURRENT MEDICATION [Concomitant]

REACTIONS (2)
  - Rash follicular [Not Recovered/Not Resolved]
  - Acne [Not Recovered/Not Resolved]
